FAERS Safety Report 8048230-4 (Version None)
Quarter: 2012Q1

REPORT INFORMATION
  Report Type: 
  Country: None (occurrence: None)
  Receive Date: 20120117
  Receipt Date: 20120112
  Transmission Date: 20120608
  Serious: Yes (Hospitalization)
  Sender: FDA-Public Use
  Company Number: US-SANTEN INC.-INC-11-000086

PATIENT
  Sex: Male

DRUGS (1)
  1. LEVOFLOXACIN [Suspect]
     Route: 047
     Dates: start: 20080701

REACTIONS (3)
  - WOUND DEHISCENCE [None]
  - KERATITIS BACTERIAL [None]
  - CHOROIDAL HAEMORRHAGE [None]
